FAERS Safety Report 14293010 (Version 2)
Quarter: 2018Q1

REPORT INFORMATION
  Report Type: Spontaneous
  Country: JP (occurrence: JP)
  Receive Date: 20171215
  Receipt Date: 20180207
  Transmission Date: 20180509
  Serious: Yes (Hospitalization, Other)
  Sender: FDA-Public Use
  Company Number: JP-JNJFOC-20171218304

PATIENT
  Age: 41 Year
  Sex: Male

DRUGS (1)
  1. PREZCOBIX [Suspect]
     Active Substance: COBICISTAT\DARUNAVIR ETHANOLATE
     Indication: HIV INFECTION
     Route: 048
     Dates: start: 20170127, end: 20170525

REACTIONS (2)
  - Hepatic function abnormal [Recovered/Resolved]
  - Acute hepatitis C [Unknown]

NARRATIVE: CASE EVENT DATE: 2017
